FAERS Safety Report 10150631 (Version 1)
Quarter: 2014Q2

REPORT INFORMATION
  Report Type: Spontaneous
  Country: GB (occurrence: GB)
  Receive Date: 20140502
  Receipt Date: 20140502
  Transmission Date: 20141212
  Serious: Yes (Other)
  Sender: FDA-Public Use
  Company Number: GB-ELI_LILLY_AND_COMPANY-GB201404008841

PATIENT
  Age: 79 Year
  Sex: Male

DRUGS (6)
  1. HUMALOG 25% LISPRO, 75% NPL [Suspect]
     Indication: TYPE 2 DIABETES MELLITUS
     Dosage: 28 U, EACH MORNING
     Route: 058
  2. HUMALOG 25% LISPRO, 75% NPL [Suspect]
     Dosage: 38 U, EACH EVENING
     Route: 058
  3. GABAPENTIN [Concomitant]
  4. NAPROXEN [Concomitant]
  5. PREDNISOLONE [Concomitant]
  6. METFORMIN [Concomitant]

REACTIONS (2)
  - Localised infection [Not Recovered/Not Resolved]
  - Blood glucose increased [Not Recovered/Not Resolved]
